FAERS Safety Report 6206612-7 (Version None)
Quarter: 2009Q2

REPORT INFORMATION
  Report Type: 
  Country: None (occurrence: None)
  Receive Date: 20090527
  Receipt Date: 20090527
  Transmission Date: 20091009
  Serious: Yes (Other)
  Sender: FDA-Public Use
  Company Number: None

PATIENT
  Sex: Female
  Weight: 68.9467 kg

DRUGS (1)
  1. MIRENA [Suspect]
     Indication: CONTRACEPTION
     Dosage: ONE ONCE INTRA-UTERINE
     Route: 015

REACTIONS (17)
  - ABDOMINAL PAIN [None]
  - ABNORMAL BEHAVIOUR [None]
  - ANGER [None]
  - BACK PAIN [None]
  - COITAL BLEEDING [None]
  - DEPRESSION [None]
  - DYSPAREUNIA [None]
  - DYSSTASIA [None]
  - FATIGUE [None]
  - HEADACHE [None]
  - IRRITABILITY [None]
  - LOSS OF LIBIDO [None]
  - MENORRHAGIA [None]
  - METRORRHAGIA [None]
  - MOOD ALTERED [None]
  - MOVEMENT DISORDER [None]
  - WEIGHT INCREASED [None]
